FAERS Safety Report 22647911 (Version 1)
Quarter: 2023Q2

REPORT INFORMATION
  Report Type: Spontaneous
  Country: US (occurrence: US)
  Receive Date: 20230628
  Receipt Date: 20230628
  Transmission Date: 20230722
  Serious: Yes (Other)
  Sender: FDA-Public Use
  Company Number: US-GE HEALTHCARE-2023CSU005089

PATIENT
  Age: 77 Year
  Sex: Female

DRUGS (4)
  1. MYOVIEW [Suspect]
     Active Substance: TECHNETIUM TC-99M TETROFOSMIN
     Indication: Scan myocardial perfusion
     Dosage: 403.3 MBQ, SINGLE
     Route: 042
     Dates: start: 20230621, end: 20230621
  2. MYOVIEW [Suspect]
     Active Substance: TECHNETIUM TC-99M TETROFOSMIN
     Indication: Dyspnoea
  3. TECHNETIUM TC-99M [Concomitant]
     Active Substance: TECHNETIUM TC-99M
     Indication: Scan myocardial perfusion
     Dosage: UNK UNK, SINGLE
     Dates: start: 20230621, end: 20230621
  4. TECHNETIUM TC-99M [Concomitant]
     Active Substance: TECHNETIUM TC-99M
     Indication: Dyspnoea

REACTIONS (4)
  - Eye swelling [Recovered/Resolved]
  - Hypoaesthesia oral [Not Recovered/Not Resolved]
  - Swollen tongue [Recovered/Resolved]
  - Speech disorder [Recovered/Resolved]

NARRATIVE: CASE EVENT DATE: 20230621
